FAERS Safety Report 10077556 (Version 1)
Quarter: 2014Q2

REPORT INFORMATION
  Report Type: Spontaneous
  Country: US (occurrence: US)
  Receive Date: 20140414
  Receipt Date: 20140414
  Transmission Date: 20141212
  Serious: Yes (Other)
  Sender: FDA-Public Use
  Company Number: US-009507513-1404USA003961

PATIENT
  Sex: 0

DRUGS (2)
  1. TEMODAR [Suspect]
     Indication: BRAIN NEOPLASM MALIGNANT
     Dosage: UNK
     Dates: start: 20140211
  2. SULFAMETHOXAZOLE (+) TRIMETHOPRIM [Concomitant]
     Dosage: UNK
     Route: 048
     Dates: start: 20120212

REACTIONS (4)
  - Rash generalised [Recovering/Resolving]
  - Odynophagia [Unknown]
  - Oropharyngeal pain [Recovered/Resolved]
  - Oropharyngeal pain [Not Recovered/Not Resolved]
